FAERS Safety Report 5031052-6 (Version None)
Quarter: 2006Q2

REPORT INFORMATION
  Report Type: 
  Country: None (occurrence: None)
  Receive Date: 20060621
  Receipt Date: 20060609
  Transmission Date: 20061013
  Serious: Yes (Hospitalization, Other)
  Sender: FDA-Public Use
  Company Number: DE-JNJFOC-20060400870

PATIENT
  Sex: Female
  Weight: 55 kg

DRUGS (3)
  1. TOPAMAX [Suspect]
     Indication: MIGRAINE
     Route: 048
  2. GAMMUNEX [Concomitant]
     Indication: MULTIPLE SCLEROSIS
     Route: 065
  3. IBUPROFEN [Concomitant]
     Indication: MIGRAINE
     Route: 048

REACTIONS (1)
  - MULTIPLE SCLEROSIS [None]
